FAERS Safety Report 9773564 (Version 1)
Quarter: 2013Q4

REPORT INFORMATION
  Report Type: Spontaneous
  Country: ES (occurrence: None)
  Receive Date: 20131217
  Receipt Date: 20131217
  Transmission Date: 20140711
  Serious: Yes (Hospitalization)
  Sender: FDA-Public Use
  Company Number: FK201305323

PATIENT
  Age: 64 Year
  Sex: Female

DRUGS (2)
  1. PACLITAXEL (PACLITAXEL) (PACLITAXEL) [Suspect]
     Indication: OVARIAN EPITHELIAL CANCER
  2. GEMCITABINE (GEMCITABINE) (GEMCITABINE) [Suspect]
     Indication: OVARIAN EPITHELIAL CANCER

REACTIONS (1)
  - Rhabdomyolysis [None]
